FAERS Safety Report 14422774 (Version 1)
Quarter: 2018Q1

REPORT INFORMATION
  Report Type: Spontaneous
  Country: US (occurrence: US)
  Receive Date: 20180123
  Receipt Date: 20180123
  Transmission Date: 20180509
  Serious: No
  Sender: FDA-Public Use
  Company Number: US-BAYER-2018-013479

PATIENT
  Sex: Female
  Weight: 37 kg

DRUGS (2)
  1. IRON [Concomitant]
     Active Substance: IRON
  2. MIRALAX [Suspect]
     Active Substance: POLYETHYLENE GLYCOL 3350
     Indication: CONSTIPATION
     Dosage: ONCE IN THE MORNING AND ONCE AT NIGHT, BID
     Route: 065

REACTIONS (4)
  - Wrong technique in product usage process [Unknown]
  - Product prescribing issue [Unknown]
  - Drug ineffective [Unknown]
  - Product use issue [Unknown]
